FAERS Safety Report 6684482-0 (Version None)
Quarter: 2010Q2

REPORT INFORMATION
  Report Type: 
  Country: None (occurrence: None)
  Receive Date: 20100416
  Receipt Date: 20100412
  Transmission Date: 20101027
  Serious: Yes (Hospitalization)
  Sender: FDA-Public Use
  Company Number: JP-BAYER-200910437BYL

PATIENT
  Age: 81 Year
  Sex: Female
  Weight: 42 kg

DRUGS (11)
  1. NEXAVAR [Suspect]
     Indication: RENAL CELL CARCINOMA
     Dosage: UNIT DOSE: 200 MG
     Route: 048
     Dates: start: 20080630, end: 20080717
  2. NEXAVAR [Suspect]
     Dosage: UNIT DOSE: 200 MG
     Route: 048
     Dates: start: 20080723, end: 20090416
  3. NIVADIL [Concomitant]
     Route: 048
     Dates: start: 20080630
  4. FLAVERIC [Concomitant]
     Route: 048
     Dates: start: 20080630
  5. APLACE [Concomitant]
     Route: 048
     Dates: start: 20080630
  6. ASPIRIN [Concomitant]
     Indication: PROPHYLAXIS
     Route: 048
     Dates: start: 20080630
  7. OMEPRAL [Concomitant]
     Route: 048
     Dates: start: 20080630
  8. PURSENNID [Concomitant]
     Route: 048
     Dates: start: 20080630
  9. SELTOUCH [Concomitant]
     Route: 062
     Dates: start: 20080630
  10. BLADDERON [Concomitant]
     Route: 048
     Dates: start: 20080712
  11. MAGMITT [Concomitant]
     Route: 048
     Dates: start: 20090423

REACTIONS (4)
  - BLOOD AMYLASE INCREASED [None]
  - CEREBRAL INFARCTION [None]
  - LIPASE INCREASED [None]
  - RASH GENERALISED [None]
